FAERS Safety Report 6379738-5 (Version None)
Quarter: 2009Q3

REPORT INFORMATION
  Report Type: 
  Country: None (occurrence: None)
  Receive Date: 20090924
  Receipt Date: 20090924
  Transmission Date: 20100115
  Serious: Yes (Death)
  Sender: FDA-Public Use
  Company Number: None

PATIENT
  Age: 29 Year
  Sex: Female

DRUGS (8)
  1. EFAVIRENZ [Suspect]
     Indication: HIV INFECTION
     Dosage: 600 MG QD ORAL
     Route: 048
     Dates: start: 20090806, end: 20090828
  2. TRUVADA [Suspect]
     Indication: HIV INFECTION
     Dosage: 500 MG QD ORAL
     Route: 048
     Dates: start: 20090806, end: 20090828
  3. COTRIM [Concomitant]
  4. PYRIDOXINE [Concomitant]
  5. RIFAMPICIN [Concomitant]
  6. ISONIAZID [Concomitant]
  7. ETHAMBUTOL HYDROCHLORIDE [Concomitant]
  8. PYRAZINAMIDE [Concomitant]

REACTIONS (24)
  - ABDOMINAL PAIN [None]
  - ASTHENIA [None]
  - BLOOD ALBUMIN DECREASED [None]
  - BLOOD BILIRUBIN INCREASED [None]
  - BLOOD CREATINE INCREASED [None]
  - BLOOD PRESSURE DIASTOLIC DECREASED [None]
  - BLOOD SODIUM DECREASED [None]
  - COMA HEPATIC [None]
  - CONFUSIONAL STATE [None]
  - DERMATITIS [None]
  - EATING DISORDER [None]
  - HEART RATE INCREASED [None]
  - HEPATIC ENCEPHALOPATHY [None]
  - HEPATITIS [None]
  - HEPATOMEGALY [None]
  - HEPATOTOXICITY [None]
  - HYPOAESTHESIA [None]
  - HYPOGLYCAEMIA [None]
  - JAUNDICE [None]
  - ORAL CANDIDIASIS [None]
  - RASH [None]
  - STEVENS-JOHNSON SYNDROME [None]
  - STUPOR [None]
  - VOMITING [None]
